FAERS Safety Report 9001875 (Version 1)
Quarter: 2013Q1

REPORT INFORMATION
  Report Type: Spontaneous
  Country: US (occurrence: US)
  Receive Date: 20130108
  Receipt Date: 20130108
  Transmission Date: 20140127
  Serious: Yes (Hospitalization)
  Sender: FDA-Public Use
  Company Number: US-ELI_LILLY_AND_COMPANY-US201301000267

PATIENT
  Sex: Male

DRUGS (4)
  1. AXIRON [Suspect]
     Indication: BLOOD TESTOSTERONE DECREASED
     Dosage: 60 MG, QD
     Route: 061
     Dates: start: 2011
  2. AXIRON [Suspect]
     Dosage: 30 MG, QD
     Route: 061
  3. ADVAIR [Concomitant]
     Dosage: UNK
  4. SINGULAIR [Concomitant]
     Dosage: UNK

REACTIONS (5)
  - Atrial fibrillation [Unknown]
  - Pneumonia [Unknown]
  - Red blood cell count increased [Unknown]
  - Blood testosterone increased [Unknown]
  - Sleep apnoea syndrome [Unknown]
